FAERS Safety Report 9894600 (Version 1)
Quarter: 2014Q1

REPORT INFORMATION
  Report Type: Report from Study
  Country: FR (occurrence: FR)
  Receive Date: 20140213
  Receipt Date: 20140213
  Transmission Date: 20141002
  Serious: Yes (Death, Other)
  Sender: FDA-Public Use
  Company Number: FR-CELGENEUS-056-C4047-14021423

PATIENT
  Age: 66 Year
  Sex: Female
  Weight: 50 kg

DRUGS (2)
  1. CC-4047 [Suspect]
     Indication: PLASMA CELL MYELOMA
     Dosage: 4 MILLIGRAM
     Route: 048
     Dates: start: 20120307, end: 20120325
  2. DEXAMETHASONE [Concomitant]
     Indication: PLASMA CELL MYELOMA
     Dosage: 40 MILLIGRAM
     Route: 065

REACTIONS (7)
  - Septic shock [Fatal]
  - Thrombocytopenia [Unknown]
  - Leukopenia [Unknown]
  - Lung disorder [Unknown]
  - Anaemia [Unknown]
  - Plasma cell myeloma [Unknown]
  - Liver function test abnormal [Unknown]
